FAERS Safety Report 4924118-X (Version None)
Quarter: 2006Q1

REPORT INFORMATION
  Report Type: 
  Country: None (occurrence: None)
  Receive Date: 20060227
  Receipt Date: 20051116
  Transmission Date: 20060701
  Serious: No
  Sender: FDA-Public Use
  Company Number: US-GLAXOSMITHKLINE-A0582592A

PATIENT
  Age: 64 Year
  Sex: Female

DRUGS (8)
  1. WELLBUTRIN XL [Suspect]
     Indication: DEPRESSION
     Dosage: 150MG PER DAY
     Route: 048
     Dates: start: 20051026
  2. HYDROCHLOROTHIAZIDE [Concomitant]
  3. LOTREL [Concomitant]
  4. ALDACTONE [Concomitant]
  5. GLYBURIDE [Concomitant]
  6. LIPITOR [Concomitant]
  7. ZETIA [Concomitant]
  8. SYNTHROID [Concomitant]

REACTIONS (5)
  - FEELING JITTERY [None]
  - HEADACHE [None]
  - HOT FLUSH [None]
  - NERVOUSNESS [None]
  - SLEEP DISORDER [None]
